FAERS Safety Report 18241449 (Version 2)
Quarter: 2020Q3

REPORT INFORMATION
  Report Type: Report from Study
  Country: EG (occurrence: EG)
  Receive Date: 20200908
  Receipt Date: 20200911
  Transmission Date: 20201103
  Serious: Yes (Death)
  Sender: FDA-Public Use
  Company Number: EG-PFIZER INC-2020343500

PATIENT
  Age: 6 Month
  Sex: Male

DRUGS (5)
  1. AMPHOTERICIN B. [Concomitant]
     Active Substance: AMPHOTERICIN B
     Indication: PNEUMOCYSTIS JIROVECII INFECTION
     Dosage: UNK
  2. NYSTATIN. [Concomitant]
     Active Substance: NYSTATIN
     Indication: PNEUMOCYSTIS JIROVECII INFECTION
     Dosage: UNK
  3. NYSTATIN. [Concomitant]
     Active Substance: NYSTATIN
     Indication: ASPERGILLUS INFECTION
  4. FLUCONAZOLE. [Suspect]
     Active Substance: FLUCONAZOLE
     Indication: CANDIDA INFECTION
     Dosage: UNK
  5. AMPHOTERICIN B. [Concomitant]
     Active Substance: AMPHOTERICIN B
     Indication: ASPERGILLUS INFECTION

REACTIONS (1)
  - Drug ineffective [Fatal]
